FAERS Safety Report 4469322-2 (Version None)
Quarter: 2004Q4

REPORT INFORMATION
  Report Type: 
  Country: None (occurrence: None)
  Receive Date: 20041008
  Receipt Date: 20031203
  Transmission Date: 20050328
  Serious: No
  Sender: FDA-Public Use
  Company Number: US-BRISTOL-MYERS SQUIBB COMPANY-12448445

PATIENT
  Sex: Female

DRUGS (1)
  1. AVAPRO [Suspect]
     Route: 048

REACTIONS (2)
  - ERYTHEMA [None]
  - FATIGUE [None]
